FAERS Safety Report 7381123-4 (Version None)
Quarter: 2011Q1

REPORT INFORMATION
  Report Type: 
  Country: None (occurrence: None)
  Receive Date: 20110329
  Receipt Date: 20101104
  Transmission Date: 20110831
  Serious: No
  Sender: FDA-Public Use
  Company Number: US-AMGEN-USASP2010003554

PATIENT
  Age: 71 Year
  Sex: Female

DRUGS (15)
  1. MEVACOR [Concomitant]
  2. PREVACID [Concomitant]
  3. ROCALTROL [Concomitant]
  4. SENSIPAR [Suspect]
     Indication: HYPERPARATHYROIDISM SECONDARY
     Dosage: 30 MG, QD
     Dates: start: 20101001, end: 20100101
  5. CIPRO [Concomitant]
  6. XANAX [Concomitant]
  7. ASPIRIN [Concomitant]
  8. ANTIVERT                           /00007101/ [Concomitant]
  9. MICRONASE [Concomitant]
  10. WYGESIC [Concomitant]
  11. DARVOCET [Concomitant]
  12. TUMS                               /00108001/ [Concomitant]
  13. ALLOPURINOL [Concomitant]
  14. FOSRENOL [Concomitant]
  15. ROPINIROLE [Concomitant]

REACTIONS (1)
  - DIARRHOEA [None]
